FAERS Safety Report 11145883 (Version 1)
Quarter: 2015Q2

REPORT INFORMATION
  Report Type: Report from Study
  Country: US (occurrence: US)
  Receive Date: 20150528
  Receipt Date: 20150528
  Transmission Date: 20150821
  Serious: Yes (Death)
  Sender: FDA-Public Use
  Company Number: US-ASTELLAS-2015US017805

PATIENT
  Sex: Female

DRUGS (4)
  1. ERLOTINIB [Suspect]
     Active Substance: ERLOTINIB
     Indication: NON-HODGKIN^S LYMPHOMA
  2. ERLOTINIB [Suspect]
     Active Substance: ERLOTINIB
     Indication: MALIGNANT LYMPHOID NEOPLASM
     Route: 048
  3. ERLOTINIB [Suspect]
     Active Substance: ERLOTINIB
     Indication: HEPATIC CANCER
  4. ERLOTINIB [Suspect]
     Active Substance: ERLOTINIB
     Indication: FOLLICULAR DENDRITIC CELL SARCOMA

REACTIONS (3)
  - Off label use [Unknown]
  - Death [Fatal]
  - Malaise [Unknown]
